FAERS Safety Report 19892838 (Version 1)
Quarter: 2021Q3

REPORT INFORMATION
  Report Type: Spontaneous
  Country: US (occurrence: US)
  Receive Date: 20210929
  Receipt Date: 20210929
  Transmission Date: 20211014
  Serious: No
  Sender: FDA-Public Use
  Company Number: US-TOLMAR, INC.-21US028511

PATIENT
  Sex: Female

DRUGS (2)
  1. FENSOLVI [Suspect]
     Active Substance: LEUPROLIDE ACETATE
     Indication: PRECOCIOUS PUBERTY
     Dosage: 45 MILLIGRAM, Q 6 MONTH
     Dates: start: 20210413
  2. PAIN EASE [NORFLURANE;PENTAFLUOROPROPANE] [Concomitant]
     Indication: APPLICATION SITE ANAESTHESIA

REACTIONS (1)
  - Drug ineffective [Unknown]
